FAERS Safety Report 18527591 (Version 1)
Quarter: 2020Q4

REPORT INFORMATION
  Report Type: Spontaneous
  Country: US (occurrence: US)
  Receive Date: 20201120
  Receipt Date: 20201120
  Transmission Date: 20210114
  Serious: Yes (Disabling, Other)
  Sender: FDA-Public Use
  Company Number: None

PATIENT
  Age: 68 Year
  Sex: Male
  Weight: 67.5 kg

DRUGS (3)
  1. BUSPIRONE [Suspect]
     Active Substance: BUSPIRONE HYDROCHLORIDE
     Indication: ANXIETY
     Dosage: ?          QUANTITY:1 TABLET(S);?
     Route: 048
     Dates: start: 20200608, end: 20201105
  2. PREDNISONE. [Concomitant]
     Active Substance: PREDNISONE
  3. GLUCOSAMINE, CHONDROITIN WITH MSM [Concomitant]

REACTIONS (6)
  - Abnormal dreams [None]
  - Alopecia [None]
  - Arthritis [None]
  - Musculoskeletal stiffness [None]
  - Pain in extremity [None]
  - Vertigo [None]

NARRATIVE: CASE EVENT DATE: 20200908
